FAERS Safety Report 5605261-9 (Version None)
Quarter: 2008Q1

REPORT INFORMATION
  Report Type: 
  Country: None (occurrence: None)
  Receive Date: 20080129
  Receipt Date: 20080115
  Transmission Date: 20080703
  Serious: Yes (Other)
  Sender: FDA-Public Use
  Company Number: US-PFIZER INC-2008007558

PATIENT
  Sex: Male
  Weight: 143.18 kg

DRUGS (6)
  1. CHANTIX [Suspect]
     Indication: SMOKING CESSATION THERAPY
  2. RISPERDAL [Concomitant]
  3. TEGRETOL [Concomitant]
  4. LUNESTA [Concomitant]
  5. PROZAC [Concomitant]
  6. WELLBUTRIN [Concomitant]

REACTIONS (1)
  - SUICIDAL IDEATION [None]
